FAERS Safety Report 21716531 (Version 1)
Quarter: 2022Q4

REPORT INFORMATION
  Report Type: Spontaneous
  Country: US (occurrence: US)
  Receive Date: 20221212
  Receipt Date: 20221212
  Transmission Date: 20230113
  Serious: No
  Sender: FDA-Public Use
  Company Number: US-BAYER-2022A169579

PATIENT

DRUGS (1)
  1. MIRALAX [Suspect]
     Active Substance: POLYETHYLENE GLYCOL 3350
     Dosage: NOT I WAS TOLD TO TAKE THREE QUARTERS OF A DOSE. DOSE
     Route: 065

REACTIONS (1)
  - Product use issue [Unknown]
